FAERS Safety Report 11726493 (Version 2)
Quarter: 2016Q1

REPORT INFORMATION
  Report Type: Spontaneous
  Country: US (occurrence: US)
  Receive Date: 20151112
  Receipt Date: 20160209
  Transmission Date: 20160525
  Serious: No
  Sender: FDA-Public Use
  Company Number: US-009507513-1011USA03114

PATIENT
  Age: 33 Year
  Sex: Female

DRUGS (3)
  1. SUSTIVA [Interacting]
     Active Substance: EFAVIRENZ
     Indication: ANTIRETROVIRAL THERAPY
     Dosage: 600 MG, UNK
     Route: 065
     Dates: start: 200701
  2. IMPLANON [Suspect]
     Active Substance: ETONOGESTREL
     Indication: CONTRACEPTION
     Dosage: UNK
     Route: 065
     Dates: start: 200407
  3. TRUVADA [Interacting]
     Active Substance: EMTRICITABINE\TENOFOVIR DISOPROXIL FUMARATE
     Dosage: 200MG + 245MG, UNK
     Dates: start: 200701

REACTIONS (3)
  - Normal newborn [Recovered/Resolved]
  - Drug interaction [Unknown]
  - Pregnancy with implant contraceptive [Recovered/Resolved]
